FAERS Safety Report 19870788 (Version 2)
Quarter: 2021Q4

REPORT INFORMATION
  Report Type: Spontaneous
  Country: US (occurrence: US)
  Receive Date: 20210923
  Receipt Date: 20211111
  Transmission Date: 20220303
  Serious: No
  Sender: FDA-Public Use
  Company Number: US-JNJFOC-20210909207

PATIENT
  Sex: Female

DRUGS (2)
  1. WOMENS ROGAINE UNSCENTED [Suspect]
     Active Substance: MINOXIDIL
     Indication: Accidental exposure to product
     Dosage: CAP FULL
     Route: 047
     Dates: start: 202108
  2. WOMENS ROGAINE UNSCENTED [Suspect]
     Active Substance: MINOXIDIL
     Indication: Alopecia

REACTIONS (5)
  - Poor quality product administered [Unknown]
  - Product container issue [Unknown]
  - Wrong technique in product usage process [Unknown]
  - Overdose [Unknown]
  - Accidental exposure to product [Unknown]
